FAERS Safety Report 8207959-5 (Version None)
Quarter: 2012Q1

REPORT INFORMATION
  Report Type: 
  Country: None (occurrence: None)
  Receive Date: 20120314
  Receipt Date: 20120305
  Transmission Date: 20120608
  Serious: Yes (Other)
  Sender: FDA-Public Use
  Company Number: CA-JNJFOC-20120302758

PATIENT
  Sex: Female
  Weight: 47 kg

DRUGS (4)
  1. SYNTHROID [Concomitant]
     Route: 065
  2. CARBOCAL D [Concomitant]
     Route: 065
  3. REMICADE [Suspect]
     Indication: CROHN'S DISEASE
     Dosage: 100 MG/VIAL
     Route: 042
     Dates: start: 20080115
  4. CELEBREX [Concomitant]
     Route: 065

REACTIONS (1)
  - CONJUNCTIVITIS [None]
